FAERS Safety Report 16750578 (Version 1)
Quarter: 2019Q3

REPORT INFORMATION
  Report Type: Spontaneous
  Country: CA (occurrence: CA)
  Receive Date: 20190828
  Receipt Date: 20190828
  Transmission Date: 20191005
  Serious: Yes (Other)
  Sender: FDA-Public Use
  Company Number: CA-PFIZER INC-2019367008

PATIENT
  Age: 54 Year
  Sex: Male
  Weight: 74 kg

DRUGS (18)
  1. LANTUS [Concomitant]
     Active Substance: INSULIN GLARGINE
     Dosage: UNK, 1X/DAY
     Route: 065
  2. LORAZEPAM. [Concomitant]
     Active Substance: LORAZEPAM
     Dosage: 1.0 MG, UNK
     Route: 065
  3. METOCLOPRAMIDE. [Concomitant]
     Active Substance: METOCLOPRAMIDE
     Dosage: 5.0 MG, UNK
     Route: 065
  4. ABRAXANE [Suspect]
     Active Substance: PACLITAXEL
     Indication: PANCREATIC CARCINOMA METASTATIC
     Dosage: UNK, WEEKLY
     Route: 041
  5. HUMALOG [Concomitant]
     Active Substance: INSULIN LISPRO
     Dosage: UNK
     Route: 065
  6. OMEPRAZOLE. [Concomitant]
     Active Substance: OMEPRAZOLE
     Dosage: 40 MG, UNK (2 EVERY 1 DAY (S))
     Route: 065
  7. ABRAXANE [Suspect]
     Active Substance: PACLITAXEL
     Dosage: UNK, WEEKLY
     Route: 041
  8. FRAGMIN [Concomitant]
     Active Substance: DALTEPARIN SODIUM
     Dosage: UNK, 1X/DAY
     Route: 065
  9. GEMCITABINE HYDROCHLORIDE. [Suspect]
     Active Substance: GEMCITABINE HYDROCHLORIDE
     Dosage: UNK
     Route: 065
  10. APREPITANT. [Concomitant]
     Active Substance: APREPITANT
     Dosage: UNK
     Route: 065
  11. OXYCODONE [Concomitant]
     Active Substance: OXYCODONE
     Dosage: 30 MG, 2X/DAY
     Route: 065
  12. OXYCODONE [Concomitant]
     Active Substance: OXYCODONE
     Dosage: 20 MG, UNK
     Route: 065
  13. ABRAXANE [Suspect]
     Active Substance: PACLITAXEL
     Dosage: UNK, WEEKLY
     Route: 041
  14. ABRAXANE [Suspect]
     Active Substance: PACLITAXEL
     Dosage: UNK UNK, WEEKLY
     Route: 041
  15. ABRAXANE [Suspect]
     Active Substance: PACLITAXEL
     Dosage: UNK, WEEKLY
     Route: 041
  16. ONDANSETRON [Concomitant]
     Active Substance: ONDANSETRON
     Dosage: UNK
     Route: 065
  17. ABRAXANE [Suspect]
     Active Substance: PACLITAXEL
     Dosage: UNK, WEEKLY
     Route: 041
  18. DEXAMETHASONE. [Concomitant]
     Active Substance: DEXAMETHASONE
     Dosage: UNK
     Route: 065

REACTIONS (5)
  - Neutrophil count decreased [Not Recovered/Not Resolved]
  - Hepatic neoplasm [Not Recovered/Not Resolved]
  - Pulmonary mass [Not Recovered/Not Resolved]
  - Second primary malignancy [Not Recovered/Not Resolved]
  - Platelet count decreased [Not Recovered/Not Resolved]
